FAERS Safety Report 4951816-4 (Version None)
Quarter: 2006Q1

REPORT INFORMATION
  Report Type: 
  Country: None (occurrence: None)
  Receive Date: 20060322
  Receipt Date: 20060322
  Transmission Date: 20060701
  Serious: Yes (Life-Threatening, Hospitalization)
  Sender: FDA-Public Use
  Company Number: None

PATIENT
  Age: 62 Year
  Sex: Male
  Weight: 105.6 kg

DRUGS (2)
  1. MIDAZOLAM HCL [Suspect]
     Indication: SEDATIVE THERAPY
     Dosage: 4 MG IV ONCE
     Route: 042
     Dates: start: 20050417
  2. FENTANYL CITRATE [Suspect]
     Indication: SEDATIVE THERAPY
     Dosage: 150 MG IV ONCE
     Route: 042
     Dates: start: 20050417

REACTIONS (1)
  - RESPIRATORY ARREST [None]
